FAERS Safety Report 4493911-2 (Version None)
Quarter: 2004Q4

REPORT INFORMATION
  Report Type: 
  Country: None (occurrence: None)
  Receive Date: 20041102
  Receipt Date: 20041018
  Transmission Date: 20050328
  Serious: Yes (Other)
  Sender: FDA-Public Use
  Company Number: USA041081530

PATIENT
  Age: 63 Year
  Sex: Female
  Weight: 100 kg

DRUGS (1)
  1. HUMULIN N [Suspect]
     Indication: DIABETES MELLITUS
     Dates: start: 19890101

REACTIONS (8)
  - APHAGIA [None]
  - CATARACT [None]
  - CONSTIPATION [None]
  - DIARRHOEA [None]
  - MALIGNANT MELANOMA [None]
  - NAUSEA [None]
  - PAIN [None]
  - WEIGHT DECREASED [None]
